FAERS Safety Report 4511559-8 (Version None)
Quarter: 2004Q4

REPORT INFORMATION
  Report Type: 
  Country: None (occurrence: None)
  Receive Date: 20041129
  Receipt Date: 20040928
  Transmission Date: 20050328
  Serious: Yes (Other)
  Sender: FDA-Public Use
  Company Number: US-BRISTOL-MYERS SQUIBB COMPANY-12714606

PATIENT
  Age: 9 Year
  Sex: Male
  Weight: 31 kg

DRUGS (3)
  1. ABILIFY [Suspect]
     Indication: DISSOCIATION
     Route: 048
     Dates: start: 20040922, end: 20040922
  2. ABILIFY [Suspect]
     Indication: OPPOSITIONAL DEFIANT DISORDER
     Route: 048
     Dates: start: 20040922, end: 20040922
  3. STRATTERA [Concomitant]

REACTIONS (1)
  - PRIAPISM [None]
